FAERS Safety Report 7117085-4 (Version None)
Quarter: 2010Q4

REPORT INFORMATION
  Report Type: 
  Country: None (occurrence: None)
  Receive Date: 20101122
  Receipt Date: 20101112
  Transmission Date: 20110411
  Serious: Yes (Other)
  Sender: FDA-Public Use
  Company Number: US-PFIZER INC-2005158180

PATIENT
  Sex: Female

DRUGS (1)
  1. ZITHROMAX [Suspect]
     Dosage: 250 MG, UNK
     Route: 048

REACTIONS (1)
  - CONSTIPATION [None]
